FAERS Safety Report 8362051-4 (Version None)
Quarter: 2012Q2

REPORT INFORMATION
  Report Type: 
  Country: None (occurrence: None)
  Receive Date: 20120515
  Receipt Date: 20120514
  Transmission Date: 20120825
  Serious: Yes (Death, Hospitalization)
  Sender: FDA-Public Use
  Company Number: IT-ROCHE-1059380

PATIENT
  Sex: Male
  Weight: 58 kg

DRUGS (5)
  1. CYCLOPHOSPHAMIDE [Suspect]
     Indication: DIFFUSE LARGE B-CELL LYMPHOMA
     Dosage: DOSE CONCENTRATION OF LAST CYCLOPHOSPHAMIDE: 1200 MG, DATE OF LAST DOSE PRIOR TO SAE: 30/MAR/2012
     Route: 042
     Dates: start: 20120126
  2. DOXORUBICIN HCL [Suspect]
     Indication: DIFFUSE LARGE B-CELL LYMPHOMA
     Dosage: DATE OF LAST DOSE PRIOR TO SAE:30/MAR/2012, DOSE OF LAST DOXORUBICIN: 80 MG
     Route: 042
     Dates: start: 20120126
  3. MABTHERA [Suspect]
     Indication: DIFFUSE LARGE B-CELL LYMPHOMA
     Dosage: VOLUME OF LAST RITUXIMAB: 301.5 ML DOSE CONCENTRATION OF LAST RITUXIMAB: 2 MG/ML
     Route: 042
     Dates: start: 20120126
  4. PREDNISONE TAB [Suspect]
     Indication: DIFFUSE LARGE B-CELL LYMPHOMA
     Dosage: DATE OF LAST DOSE PRIOR TO SAE:30/MAR/2012, DOSE OF LAST PREDNISONE: 100 MG
     Route: 048
     Dates: start: 20120126
  5. VINCRISTINE [Suspect]
     Indication: DIFFUSE LARGE B-CELL LYMPHOMA
     Dosage: DATE OF LAST DOSE PRIOR TO SAE:30/MAR/2012, DOSE OF LAST VINCRISTINE: 1.5 MG
     Dates: start: 20120126

REACTIONS (1)
  - DYSARTHRIA [None]
